FAERS Safety Report 6185338-2 (Version None)
Quarter: 2009Q2

REPORT INFORMATION
  Report Type: 
  Country: None (occurrence: None)
  Receive Date: 20090511
  Receipt Date: 20090409
  Transmission Date: 20091009
  Serious: No
  Sender: FDA-Public Use
  Company Number: US-BAYER-200841204NA

PATIENT
  Age: 35 Year
  Sex: Female
  Weight: 54 kg

DRUGS (3)
  1. MIRENA [Suspect]
     Indication: CONTRACEPTION
     Dosage: CONTINUOUS
     Route: 015
     Dates: start: 20081205, end: 20081213
  2. ADVAIR HFA [Concomitant]
  3. DIFLUCAN [Concomitant]
     Dates: start: 20081207, end: 20081209

REACTIONS (5)
  - DRUG HYPERSENSITIVITY [None]
  - GENITAL BURNING SENSATION [None]
  - GENITAL DISCOMFORT [None]
  - PRURITUS [None]
  - VAGINAL DISCHARGE [None]
